FAERS Safety Report 13539594 (Version 2)
Quarter: 2017Q2

REPORT INFORMATION
  Report Type: Spontaneous
  Country: HK (occurrence: HK)
  Receive Date: 20170512
  Receipt Date: 20170517
  Transmission Date: 20170830
  Serious: Yes (Other)
  Sender: FDA-Public Use
  Company Number: HK-009507513-1705HKG004291

PATIENT
  Age: 68 Year
  Sex: Male

DRUGS (4)
  1. ALIMTA [Concomitant]
     Active Substance: PEMETREXED DISODIUM
     Dosage: Q3W FOR 6 CYCLES
     Dates: start: 201701
  2. KEYTRUDA [Suspect]
     Active Substance: PEMBROLIZUMAB
     Dosage: 1 DF, QD, 1 VIAL OF 50MG
     Dates: start: 201608
  3. CARBOPLATIN. [Concomitant]
     Active Substance: CARBOPLATIN
     Dosage: Q3W FOR 6 CYCLES
     Dates: start: 201701
  4. KEYTRUDA [Suspect]
     Active Substance: PEMBROLIZUMAB
     Dosage: 1 DF, QD, 1 VIAL OF 100MG
     Dates: start: 201608

REACTIONS (5)
  - Malignant pleural effusion [Unknown]
  - Wrong technique in product usage process [Unknown]
  - Carcinoembryonic antigen increased [Unknown]
  - Off label use [Unknown]
  - Off label use [Unknown]

NARRATIVE: CASE EVENT DATE: 2016
